FAERS Safety Report 7942224-2 (Version None)
Quarter: 2011Q4

REPORT INFORMATION
  Report Type: 
  Country: None (occurrence: None)
  Receive Date: 20111128
  Receipt Date: 20111115
  Transmission Date: 20120403
  Serious: No
  Sender: FDA-Public Use
  Company Number: CA-ELI_LILLY_AND_COMPANY-CA201111004524

PATIENT
  Sex: Male

DRUGS (6)
  1. LORAZEPAM [Concomitant]
  2. SEROQUEL [Concomitant]
  3. RISPERIDONE [Concomitant]
  4. ZYPREXA [Suspect]
     Indication: SCHIZOPHRENIA
     Dosage: 7.5 MG, UNK
     Dates: start: 19970924
  5. TOPAMAX [Concomitant]
  6. ZYPREXA [Suspect]
     Dosage: 15 MG, QD

REACTIONS (8)
  - DIARRHOEA HAEMORRHAGIC [None]
  - BLOOD ALKALINE PHOSPHATASE INCREASED [None]
  - BLOOD CHOLESTEROL INCREASED [None]
  - ALANINE AMINOTRANSFERASE INCREASED [None]
  - BLOOD TRIGLYCERIDES INCREASED [None]
  - GAMMA-GLUTAMYLTRANSFERASE INCREASED [None]
  - DIABETES MELLITUS [None]
  - RASH [None]
